FAERS Safety Report 8397543-5 (Version None)
Quarter: 2012Q2

REPORT INFORMATION
  Report Type: 
  Country: None (occurrence: None)
  Receive Date: 20120529
  Receipt Date: 20120529
  Transmission Date: 20120825
  Serious: Yes (Life-Threatening, Disabling)
  Sender: FDA-Public Use
  Company Number: None

PATIENT
  Age: 71 Year
  Sex: Male
  Weight: 89.8122 kg

DRUGS (5)
  1. GLIMEPIRIDE [Concomitant]
  2. BUMETANIDE [Suspect]
     Indication: CARDIAC DISORDER
     Dosage: 1 MG 1 X DAILY BUCCAL
     Route: 002
  3. LISINOPRIL [Concomitant]
  4. WARFARIN SODIUM [Concomitant]
  5. METOPROLOL TARTRATE [Concomitant]

REACTIONS (5)
  - GAIT DISTURBANCE [None]
  - DRY SKIN [None]
  - SKIN DISCOLOURATION [None]
  - OEDEMA PERIPHERAL [None]
  - SKIN HAEMORRHAGE [None]
